FAERS Safety Report 7512606-1 (Version None)
Quarter: 2011Q2

REPORT INFORMATION
  Report Type: 
  Country: None (occurrence: None)
  Receive Date: 20110531
  Receipt Date: 20110512
  Transmission Date: 20111010
  Serious: No
  Sender: FDA-Public Use
  Company Number: US-B.I. PHARMACEUTICALS,INC./RIDGEFIELD-2011-BP-12062BP

PATIENT
  Sex: Female

DRUGS (16)
  1. RHINOCORT [Concomitant]
     Indication: HYPERSENSITIVITY
     Route: 045
  2. ALLERGY SHOTS [Concomitant]
     Indication: HYPERSENSITIVITY
  3. DIGESTIVE ADVANTAGE [Concomitant]
  4. SPIRIVA [Suspect]
     Indication: ASTHMA
     Dosage: 18 MCG
     Route: 055
     Dates: start: 20060101
  5. IPRATROPIUM NASAL SPRAY [Concomitant]
     Indication: HYPERSENSITIVITY
     Route: 045
  6. VITAMIN C AND VITAMIN B [Concomitant]
  7. SINGULAIR [Concomitant]
     Indication: HYPERSENSITIVITY
     Dosage: 10 MG
  8. GUAIFENESIN [Concomitant]
     Indication: ASTHMA
     Dosage: 2400 MG
  9. CROMOLYN SODIUM [Concomitant]
     Indication: ASTHMA
  10. CALCIUM/VITAMIN D [Concomitant]
  11. ADVAIR HFA [Concomitant]
     Indication: ASTHMA
  12. ALBUTEROL SULFATE AUTOHALER [Concomitant]
     Indication: ASTHMA
     Dosage: 12 MG
  13. ALLEGRA [Concomitant]
     Indication: HYPERSENSITIVITY
     Dosage: 180 MG
  14. PROVENTIL ALBUTEROL SULFATE [Concomitant]
  15. ASTEPRO [Concomitant]
     Indication: HYPERSENSITIVITY
     Route: 045
  16. MIRALAX [Concomitant]

REACTIONS (7)
  - HYPERSENSITIVITY [None]
  - SLEEP APNOEA SYNDROME [None]
  - IRRITABLE BOWEL SYNDROME [None]
  - ASTHMA [None]
  - MENTAL DISORDER [None]
  - DYSURIA [None]
  - OBSESSIVE-COMPULSIVE DISORDER [None]
